FAERS Safety Report 18410545 (Version 1)
Quarter: 2020Q4

REPORT INFORMATION
  Report Type: Spontaneous
  Country: US (occurrence: US)
  Receive Date: 20201021
  Receipt Date: 20201021
  Transmission Date: 20210114
  Serious: No
  Sender: FDA-Public Use
  Company Number: None

PATIENT
  Age: 72 Year
  Sex: Female
  Weight: 65.25 kg

DRUGS (8)
  1. POTASSIUM [Concomitant]
     Active Substance: POTASSIUM
  2. ACIDOPHILUS [Concomitant]
     Active Substance: LACTOBACILLUS ACIDOPHILUS
  3. DONEPEZIL. [Concomitant]
     Active Substance: DONEPEZIL
  4. CLARITIN-D 12 HOUR [Suspect]
     Active Substance: LORATADINE\PSEUDOEPHEDRINE SULFATE
     Indication: MULTIPLE ALLERGIES
     Dosage: ?          QUANTITY:1 TABLET(S);?
     Route: 048
     Dates: end: 20201021
  5. PRAVASTATIN. [Concomitant]
     Active Substance: PRAVASTATIN
  6. FISH OIL [Concomitant]
     Active Substance: FISH OIL
  7. DULOXETINE. [Concomitant]
     Active Substance: DULOXETINE
  8. OMEPRAZOLE. [Concomitant]
     Active Substance: OMEPRAZOLE

REACTIONS (1)
  - Insomnia [None]

NARRATIVE: CASE EVENT DATE: 20201021
